FAERS Safety Report 13042498 (Version 1)
Quarter: 2016Q4

REPORT INFORMATION
  Report Type: Spontaneous
  Country: US (occurrence: US)
  Receive Date: 20161219
  Receipt Date: 20161219
  Transmission Date: 20170207
  Serious: Yes (Other)
  Sender: FDA-Public Use
  Company Number: US-BEH-2016076090

PATIENT
  Age: 47 Year
  Sex: Female
  Weight: 63.39 kg

DRUGS (2)
  1. PRIVIGEN [Suspect]
     Active Substance: HUMAN IMMUNOGLOBULIN G
     Indication: MULTIPLE SCLEROSIS
     Dosage: 25 G, 1 OF 5 INFUSION CYCLE
     Route: 042
     Dates: start: 20161205
  2. PRIVIGEN [Suspect]
     Active Substance: HUMAN IMMUNOGLOBULIN G
     Indication: STIFF PERSON SYNDROME
     Dosage: 25 G, DAILY FOR 5 DAYS
     Route: 042
     Dates: start: 20160215

REACTIONS (5)
  - Headache [Unknown]
  - Asthenia [Unknown]
  - Dyspnoea [Unknown]
  - Muscular weakness [Unknown]
  - Cerebrovascular accident [Unknown]

NARRATIVE: CASE EVENT DATE: 20161205
